FAERS Safety Report 12916533 (Version 1)
Quarter: 2016Q4

REPORT INFORMATION
  Report Type: Spontaneous
  Country: US (occurrence: US)
  Receive Date: 20161104
  Receipt Date: 20161104
  Transmission Date: 20170207
  Serious: Yes (Other)
  Sender: FDA-Public Use
  Company Number: None

PATIENT
  Age: 6 Month
  Sex: Male
  Weight: 8.1 kg

DRUGS (4)
  1. HUMPHREYS TEETHING TABLETS [Suspect]
     Active Substance: HOMEOPATHICS
     Indication: TEETHING
     Route: 048
     Dates: start: 20160701, end: 20160902
  2. BAC TRIM [Concomitant]
  3. ACTIGALL [Concomitant]
     Active Substance: URSODIOL
  4. VITAMIN D [Concomitant]
     Active Substance: CHOLECALCIFEROL

REACTIONS (4)
  - Post procedural infection [None]
  - Gastrointestinal disorder [None]
  - Product solubility abnormal [None]
  - Unevaluable event [None]

NARRATIVE: CASE EVENT DATE: 20160820
